FAERS Safety Report 9730508 (Version 1)
Quarter: 2013Q4

REPORT INFORMATION
  Report Type: Report from Study
  Country: DE (occurrence: DE)
  Receive Date: 20131202
  Receipt Date: 20131202
  Transmission Date: 20140711
  Serious: Yes (Other)
  Sender: FDA-Public Use
  Company Number: DE-SA-2013SA122756

PATIENT
  Age: 63 Year
  Sex: Female
  Weight: 67 kg

DRUGS (2)
  1. MULTAQ [Suspect]
     Indication: ATRIAL FIBRILLATION
     Route: 065
     Dates: end: 20130506
  2. BETA BLOCKING AGENTS [Concomitant]
     Indication: HYPERTENSION
     Dates: start: 201004

REACTIONS (1)
  - Atrial fibrillation [Unknown]
